FAERS Safety Report 8839171 (Version 3)
Quarter: 2013Q1

REPORT INFORMATION
  Report Type: Spontaneous
  Country: FR (occurrence: FR)
  Receive Date: 20121015
  Receipt Date: 20130128
  Transmission Date: 20140127
  Serious: Yes (Other)
  Sender: FDA-Public Use
  Company Number: FR-009507513-1209FRA008257

PATIENT
  Age: 47 Year
  Sex: Female

DRUGS (10)
  1. VICTRELIS [Suspect]
     Indication: HEPATITIS C
     Dosage: 2400 MG, QD
     Route: 048
     Dates: start: 20120321, end: 20120612
  2. PEGASYS [Suspect]
     Indication: HEPATITIS C
     Dosage: 180 MICROGRAM, QW
     Route: 058
     Dates: start: 20120321, end: 20120612
  3. COPEGUS [Suspect]
     Indication: CHRONIC HEPATITIS C
     Dosage: 1200 MG, QD
     Route: 048
     Dates: start: 20120321, end: 20120612
  4. ATRIPLA [Suspect]
     Indication: HIV INFECTION
     Dosage: 1 DF, QD
     Route: 048
     Dates: start: 20120321
  5. ATRIPLA [Suspect]
     Dosage: 1 DF, UNK
     Route: 048
     Dates: start: 20120321
  6. ZELITREX [Concomitant]
     Indication: PRODUCT USED FOR UNKNOWN INDICATION
     Dosage: 1 DF, QD
  7. LEVOTHYROX [Concomitant]
     Indication: PRODUCT USED FOR UNKNOWN INDICATION
     Dosage: 75 MICROGRAM, QD
     Dates: start: 2009
  8. TRIATEC (RAMIPRIL) [Concomitant]
     Indication: PRODUCT USED FOR UNKNOWN INDICATION
     Dosage: 5 MG, QD
     Dates: start: 2009
  9. UVEDOSE [Concomitant]
     Indication: PRODUCT USED FOR UNKNOWN INDICATION
     Dosage: 1 DF, UNK
     Dates: start: 201204
  10. ATRIPLA [Concomitant]
     Indication: HIV INFECTION
     Dosage: UNK
     Dates: start: 20090926

REACTIONS (9)
  - Hypoacusis [Not Recovered/Not Resolved]
  - Melanoderma [Not Recovered/Not Resolved]
  - Prurigo [Recovered/Resolved]
  - Vertigo [Recovering/Resolving]
  - Tinnitus [Not Recovered/Not Resolved]
  - Anaemia [Recovered/Resolved]
  - Insomnia [Recovering/Resolving]
  - Neutropenia [Recovered/Resolved]
  - Drug ineffective [Unknown]
